FAERS Safety Report 18668858 (Version 1)
Quarter: 2020Q4

REPORT INFORMATION
  Report Type: Spontaneous
  Country: US (occurrence: US)
  Receive Date: 20201227
  Receipt Date: 20201227
  Transmission Date: 20210114
  Serious: Yes (Disabling)
  Sender: FDA-Public Use
  Company Number: None

PATIENT
  Age: 39 Year
  Sex: Male
  Weight: 135 kg

DRUGS (1)
  1. PROLIXIN [Suspect]
     Active Substance: FLUPHENAZINE HYDROCHLORIDE

REACTIONS (6)
  - Thermal burn [None]
  - Chemical burn [None]
  - Injection site erythema [None]
  - Injection site pain [None]
  - Injection site rash [None]
  - Injection site reaction [None]

NARRATIVE: CASE EVENT DATE: 20201227
